FAERS Safety Report 17583883 (Version 1)
Quarter: 2020Q1

REPORT INFORMATION
  Report Type: Spontaneous
  Country: SE (occurrence: SE)
  Receive Date: 20200326
  Receipt Date: 20200326
  Transmission Date: 20200409
  Serious: Yes (Hospitalization)
  Sender: FDA-Public Use
  Company Number: SE-TEVA-2020-SE-1210182

PATIENT
  Age: 91 Year
  Sex: Female

DRUGS (5)
  1. PRAMIPEXOLE. [Suspect]
     Active Substance: PRAMIPEXOLE
     Dates: end: 202002
  2. WARFARIN [Concomitant]
     Active Substance: WARFARIN
  3. SPIRONOLACTONE. [Suspect]
     Active Substance: SPIRONOLACTONE
     Dates: end: 202002
  4. PREGABALIN. [Suspect]
     Active Substance: PREGABALIN
     Route: 065
  5. TOLTERODINE [Suspect]
     Active Substance: TOLTERODINE
     Dates: end: 202002

REACTIONS (2)
  - General physical health deterioration [Recovering/Resolving]
  - Orthostatic hypotension [Recovering/Resolving]

NARRATIVE: CASE EVENT DATE: 2020
